FAERS Safety Report 14094343 (Version 3)
Quarter: 2017Q4

REPORT INFORMATION
  Report Type: Spontaneous
  Country: US (occurrence: US)
  Receive Date: 20171016
  Receipt Date: 20171108
  Transmission Date: 20180321
  Serious: Yes (Hospitalization, Other)
  Sender: FDA-Public Use
  Company Number: US-PFIZER INC-2017441101

PATIENT
  Age: 80 Year
  Sex: Male
  Weight: 59 kg

DRUGS (5)
  1. SUTENT [Suspect]
     Active Substance: SUNITINIB MALATE
     Dosage: 50 MG, CYCLIC; (TAKE IT 2 WEEKS ON AND 2 WEEKS OFF)/ (ONCE A DAY FOR 2 WEEKS THEN OFF FOR 2 WEEKS)
     Dates: start: 20170907
  2. TAMSULOSIN [Concomitant]
     Active Substance: TAMSULOSIN
     Indication: PROSTATOMEGALY
     Dosage: 0.4 MG, 1X/DAY
     Route: 048
     Dates: start: 2009
  3. FLOMAX [Concomitant]
     Active Substance: TAMSULOSIN HYDROCHLORIDE
     Dosage: UNK
  4. SUTENT [Suspect]
     Active Substance: SUNITINIB MALATE
     Indication: METASTATIC NEOPLASM
     Dosage: 50 MG, CYCLIC(50MG CAPSULES, TAKE ONE CAPSULE BY MOUTH, ONCE DAILY FOR 4 WEEKS THEN OFF TWO WEEKS)
     Route: 048
     Dates: start: 201708
  5. PANTOPRAZOLE [Concomitant]
     Active Substance: PANTOPRAZOLE
     Indication: GASTRIC DISORDER
     Dosage: UNK

REACTIONS (7)
  - Loss of consciousness [Not Recovered/Not Resolved]
  - Decreased appetite [Recovered/Resolved]
  - Gastrointestinal haemorrhage [Recovered/Resolved]
  - Ageusia [Recovered/Resolved]
  - Oral discomfort [Not Recovered/Not Resolved]
  - Lethargy [Not Recovered/Not Resolved]
  - Condition aggravated [Not Recovered/Not Resolved]

NARRATIVE: CASE EVENT DATE: 201708
